FAERS Safety Report 4441605-1 (Version None)
Quarter: 2004Q3

REPORT INFORMATION
  Report Type: 
  Country: None (occurrence: None)
  Receive Date: 20040907
  Receipt Date: 20040506
  Transmission Date: 20050211
  Serious: Yes (Hospitalization)
  Sender: FDA-Public Use
  Company Number: SE-ROCHE-367585

PATIENT
  Age: 57 Year
  Sex: Male

DRUGS (56)
  1. DACLIZUMAB [Suspect]
     Route: 042
     Dates: start: 20040428, end: 20040428
  2. DACLIZUMAB [Suspect]
     Route: 042
     Dates: start: 20040506, end: 20040506
  3. MYCOPHENOLATE MOFETIL [Suspect]
     Route: 042
     Dates: start: 20040428, end: 20040502
  4. MYCOPHENOLATE MOFETIL [Suspect]
     Route: 048
     Dates: start: 20040503, end: 20040601
  5. MYCOPHENOLATE MOFETIL [Suspect]
     Dosage: DECREASED DUE TO ADVERSE EVENT/TOXICITY.
     Route: 048
     Dates: start: 20040602, end: 20040602
  6. MYCOPHENOLATE MOFETIL [Suspect]
     Dosage: DECREASED DUE TO ADVERSE EVENT/TOXICITY.
     Route: 048
     Dates: start: 20040603
  7. METHYLPREDNISOLONE [Suspect]
     Route: 065
     Dates: start: 20040427, end: 20040427
  8. METHYLPREDNISOLONE [Suspect]
     Dosage: TREATMENT FOR REJECTION.
     Route: 065
     Dates: start: 20040526, end: 20040526
  9. PREDNISOLONE [Suspect]
     Route: 065
     Dates: start: 20040428, end: 20040428
  10. PREDNISOLONE [Suspect]
     Route: 065
     Dates: start: 20040429, end: 20040429
  11. PREDNISOLONE [Suspect]
     Route: 065
     Dates: start: 20040430, end: 20040430
  12. PREDNISOLONE [Suspect]
     Route: 065
     Dates: start: 20040501, end: 20040501
  13. PREDNISOLONE [Suspect]
     Route: 065
     Dates: start: 20040502, end: 20040513
  14. PREDNISOLONE [Suspect]
     Route: 065
     Dates: start: 20040514, end: 20040518
  15. PREDNISOLONE [Suspect]
     Route: 065
     Dates: start: 20040519, end: 20040526
  16. PREDNISOLONE [Suspect]
     Dosage: TREATMENT FOR REJECTION.
     Route: 065
     Dates: start: 20040527, end: 20040527
  17. PREDNISOLONE [Suspect]
     Dosage: TREATMENT FOR REJECTION.
     Route: 065
     Dates: start: 20040528, end: 20040529
  18. PREDNISOLONE [Suspect]
     Dosage: BACK TO PROTOCOL TAPER.
     Route: 065
     Dates: start: 20040530, end: 20040531
  19. PREDNISOLONE [Suspect]
     Dosage: ALTERED DUE TO ADVERSE EVENT/TOXICITY.
     Route: 065
     Dates: start: 20040601, end: 20040602
  20. PREDNISOLONE [Suspect]
     Dosage: ALTERED DUE TO ADVERSE EVENT/TOXICITY.
     Route: 065
     Dates: start: 20040603, end: 20040603
  21. PREDNISOLONE [Suspect]
     Dosage: BACK TO PROTOCOL TAPER.
     Route: 065
     Dates: start: 20040604, end: 20040621
  22. PREDNISOLONE [Suspect]
     Route: 065
     Dates: start: 20040622, end: 20040622
  23. PREDNISOLONE [Suspect]
     Route: 065
     Dates: start: 20040623
  24. TACROLIMUS [Suspect]
     Route: 048
     Dates: start: 20040427, end: 20040428
  25. TACROLIMUS [Suspect]
     Route: 048
     Dates: start: 20040430, end: 20040502
  26. TACROLIMUS [Suspect]
     Route: 048
     Dates: start: 20040503, end: 20040505
  27. TACROLIMUS [Suspect]
     Route: 048
     Dates: start: 20040506, end: 20040512
  28. TACROLIMUS [Suspect]
     Route: 048
     Dates: start: 20040513, end: 20040513
  29. TACROLIMUS [Suspect]
     Route: 048
     Dates: start: 20040514, end: 20040521
  30. TACROLIMUS [Suspect]
     Route: 048
     Dates: start: 20040522, end: 20040523
  31. TACROLIMUS [Suspect]
     Route: 048
     Dates: start: 20040524, end: 20040527
  32. TACROLIMUS [Suspect]
     Route: 048
     Dates: start: 20040528, end: 20040528
  33. TACROLIMUS [Suspect]
     Route: 048
     Dates: start: 20040529, end: 20040530
  34. TACROLIMUS [Suspect]
     Route: 048
     Dates: start: 20040531, end: 20040601
  35. TACROLIMUS [Suspect]
     Route: 048
     Dates: start: 20040602, end: 20040602
  36. TACROLIMUS [Suspect]
     Route: 048
     Dates: start: 20040603, end: 20040604
  37. TACROLIMUS [Suspect]
     Route: 048
     Dates: start: 20040605, end: 20040608
  38. TACROLIMUS [Suspect]
     Route: 048
     Dates: start: 20040609, end: 20040622
  39. TACROLIMUS [Suspect]
     Route: 048
     Dates: start: 20040623
  40. PANTOPRAZOL [Concomitant]
     Dates: start: 20040317
  41. MEROPENEM [Concomitant]
     Indication: INFECTION PROPHYLAXIS
     Dosage: STOPPED ON 2 MAY AND RESTARTED ON 17 JUN 2004 DUE TO SEPTICAEMIA.
     Dates: start: 20040427
  42. AMPHOTERICIN B [Concomitant]
     Indication: INFECTION PROPHYLAXIS
     Dosage: STOPPED ON 2 MAY 2004 AND RESTARTED ON 1 JUNE 2004 FOR SEPTICAEMIA.
     Dates: start: 20040427, end: 20040612
  43. FITOMENADION [Concomitant]
     Dosage: STOPPED ON 7 MAY AND RESTARTED ON 14 JUNE 2004 FOR BLEEDING PROPHYLAXIS/ELEVATED PK VALUE.
     Dates: start: 20040428
  44. DALTEPARIN [Concomitant]
     Indication: THROMBOSIS PROPHYLAXIS
     Dates: start: 20040428, end: 20040514
  45. ALBUMIN (HUMAN) [Concomitant]
     Indication: HYPOALBUMINAEMIA
     Dosage: ALBUMIN INFUSION.  STOPPED ON 5 MAY AND RESTARTED ON 7 MAY.  RESTARTED ON 2 JUNE 2004 AS TREATMENT +
     Route: 050
     Dates: start: 20040502
  46. VANCOMYCIN [Concomitant]
     Indication: WOUND INFECTION
     Dosage: STOPPED ON 13 MAY AND RESTARTED ON 27 MAY 2004.
     Dates: start: 20040505, end: 20040606
  47. VALGANCICLOVIR [Concomitant]
     Indication: INFECTION PROPHYLAXIS
     Route: 065
     Dates: start: 20040511
  48. ACETYLSALICYLIC ACID [Concomitant]
     Route: 065
     Dates: start: 20040528, end: 20040606
  49. ACTRAPID [Concomitant]
     Dates: start: 20040527
  50. DIAZEPAM [Concomitant]
     Route: 065
     Dates: start: 20040506, end: 20040514
  51. NATRIUM PICOSULFATE [Concomitant]
     Indication: CONSTIPATION PROPHYLAXIS
     Dates: start: 20040508, end: 20040521
  52. TRAMADOL HCL [Concomitant]
     Dates: start: 20040501, end: 20040522
  53. PARACETAMOL [Concomitant]
     Dosage: STOPPED ON 22 MAY AND RESTARTED ON 27 MAY 2004 FOR FEVER DUE TO SEPTICAEMIA.
     Dates: start: 20040501
  54. PENTAMIDIN [Concomitant]
     Indication: INFECTION PROPHYLAXIS
     Dosage: GIVEN FOR ONE DAY ON 13 MAY AND RESTARTED ON 5 JUNE 2004 FOR SHIVERING DUE TO SEPTICAEMIA.
     Dates: start: 20040513
  55. FUROSEMIDE [Concomitant]
     Indication: URINE OUTPUT DECREASED
     Dates: start: 20040603
  56. KALIUMKLORID [Concomitant]
     Indication: HYPOKALAEMIA
     Dates: start: 20040614

REACTIONS (20)
  - ABDOMINAL ABSCESS [None]
  - BACTERIAL INFECTION [None]
  - BLOOD BILIRUBIN INCREASED [None]
  - CANDIDIASIS [None]
  - DIABETES MELLITUS [None]
  - ENTEROCOCCAL INFECTION [None]
  - GALLBLADDER DISORDER [None]
  - GASTROINTESTINAL PAIN [None]
  - HEPATIC ARTERY THROMBOSIS [None]
  - HEPATIC ENZYME INCREASED [None]
  - HYPOALBUMINAEMIA [None]
  - HYPOKALAEMIA [None]
  - HYPOTENSION [None]
  - LIVER TRANSPLANT REJECTION [None]
  - PNEUMONIA KLEBSIELLA [None]
  - POST PROCEDURAL BILE LEAK [None]
  - SEPSIS [None]
  - THROMBOCYTHAEMIA [None]
  - URINE OUTPUT DECREASED [None]
  - WOUND INFECTION [None]
